FAERS Safety Report 8211629-7 (Version None)
Quarter: 2012Q1

REPORT INFORMATION
  Report Type: 
  Country: None (occurrence: None)
  Receive Date: 20120315
  Receipt Date: 20120312
  Transmission Date: 20120608
  Serious: No
  Sender: FDA-Public Use
  Company Number: US-PFIZER INC-2012036987

PATIENT

DRUGS (11)
  1. PRAVASTATIN SODIUM [Concomitant]
     Indication: BLOOD CHOLESTEROL
     Dosage: 80 MG, 1X/DAY
  2. OS-CAL D [Concomitant]
     Dosage: 500 MG, 2X/DAY (W/ MEALS)
  3. TERBINAFINE [Concomitant]
     Dosage: 250 MG, 1X/DAY
  4. PRIMIDONE [Concomitant]
     Dosage: 250 MG, 1 1/2 IN AM, 1 1/2 IN PM
  5. PRIMIDONE [Concomitant]
     Dosage: 50 MG, 2 IN AM
  6. BETAPACE [Concomitant]
     Dosage: 80 MG, 2X/DAY
  7. WARFARIN [Concomitant]
     Dosage: 10 MG, 1 IN PM
  8. NEXIUM [Concomitant]
     Dosage: 40 MG, 1 IN PM
  9. CELEBREX [Suspect]
     Dosage: 200 MG, 1X/DAY
     Route: 048
  10. METHOCARBAMOL [Concomitant]
     Dosage: 750 MG, AS NEEDED (EVERY 8 HOURS AS NEEDED)
  11. GABAPENTIN [Concomitant]
     Dosage: 300 MG, 3X/DAY

REACTIONS (1)
  - NO ADVERSE EVENT [None]
